FAERS Safety Report 15014422 (Version 2)
Quarter: 2018Q2

REPORT INFORMATION
  Report Type: Spontaneous
  Country: US (occurrence: US)
  Receive Date: 20180615
  Receipt Date: 20180630
  Transmission Date: 20180711
  Serious: No
  Sender: FDA-Public Use
  Company Number: US-IPSEN BIOPHARMACEUTICALS, INC.-2018-07871

PATIENT
  Age: 47 Year
  Sex: Female

DRUGS (5)
  1. HYLENEX RECOMBINANT [Concomitant]
     Active Substance: HYALURONIDASE (HUMAN RECOMBINANT)
  2. DYSPORT [Suspect]
     Active Substance: ABOBOTULINUMTOXINA
     Indication: WRONG DRUG ADMINISTERED
     Dosage: 1 ML
     Route: 065
     Dates: start: 20180515, end: 20180515
  3. MEDROL [Concomitant]
     Active Substance: METHYLPREDNISOLONE
  4. DYSPORT [Suspect]
     Active Substance: ABOBOTULINUMTOXINA
     Indication: WRONG DRUG ADMINISTERED
  5. JUVEDERM ULTRA XC [Suspect]
     Active Substance: HYALURONIC ACID\LIDOCAINE HYDROCHLORIDE
     Indication: PRODUCT USED FOR UNKNOWN INDICATION
     Dates: start: 20180514

REACTIONS (5)
  - Wrong drug administered [Unknown]
  - Speech disorder [Recovering/Resolving]
  - Muscular weakness [Recovering/Resolving]
  - Product preparation error [Unknown]
  - Eating disorder symptom [Recovering/Resolving]

NARRATIVE: CASE EVENT DATE: 20180517
